FAERS Safety Report 4664897-2 (Version None)
Quarter: 2005Q2

REPORT INFORMATION
  Report Type: 
  Country: None (occurrence: None)
  Receive Date: 20050517
  Receipt Date: 20050503
  Transmission Date: 20051028
  Serious: Yes (Hospitalization, Other)
  Sender: FDA-Public Use
  Company Number: DE_050515841

PATIENT
  Age: 75 Year
  Sex: Female

DRUGS (2)
  1. GEMZAR [Suspect]
     Indication: PANCREATIC CARCINOMA
     Dosage: 1000 MG/M2 DAY
  2. ENALAPRIL MALEATE [Concomitant]

REACTIONS (6)
  - CARDIAC FAILURE [None]
  - PNEUMONITIS [None]
  - PULMONARY CONGESTION [None]
  - RENAL FAILURE [None]
  - VENTILATION/PERFUSION SCAN ABNORMAL [None]
  - VENTRICULAR HYPERTROPHY [None]
